FAERS Safety Report 10068972 (Version 1)
Quarter: 2014Q2

REPORT INFORMATION
  Report Type: Spontaneous
  Country: US (occurrence: US)
  Receive Date: 20140409
  Receipt Date: 20140409
  Transmission Date: 20141212
  Serious: Yes (Death, Other)
  Sender: FDA-Public Use
  Company Number: US-GILEAD-2014-0099100

PATIENT
  Age: 58 Year
  Sex: Female

DRUGS (16)
  1. LETAIRIS [Suspect]
     Indication: PULMONARY HYPERTENSION
     Dosage: 10 MG, QD
     Route: 065
     Dates: start: 20130819, end: 20140327
  2. OXYCONTIN [Concomitant]
  3. LEVOFLOXACIN [Concomitant]
  4. GABAPENTIN [Concomitant]
  5. SYMBICORT [Concomitant]
  6. VITAMIN D NOS [Concomitant]
  7. BENAZEPRIL [Concomitant]
  8. CLONAZEPAM [Concomitant]
  9. PROAIR                             /00139502/ [Concomitant]
  10. NORCO [Concomitant]
  11. IRON [Concomitant]
  12. ASPIRIN [Concomitant]
  13. CARVEDILOL [Concomitant]
  14. PANTOPRAZOLE [Concomitant]
  15. PREDNISONE [Concomitant]
  16. FUROSEMIDE [Concomitant]

REACTIONS (1)
  - Death [Fatal]
